FAERS Safety Report 6127378-5 (Version None)
Quarter: 2009Q1

REPORT INFORMATION
  Report Type: 
  Country: None (occurrence: None)
  Receive Date: 20090323
  Receipt Date: 20090310
  Transmission Date: 20090719
  Serious: Yes (Other)
  Sender: FDA-Public Use
  Company Number: PHHY2009PL08947

PATIENT
  Sex: Female

DRUGS (1)
  1. SANDIMMUNE [Suspect]

REACTIONS (5)
  - ABDOMINAL PAIN [None]
  - FORMICATION [None]
  - HEART RATE INCREASED [None]
  - MYALGIA [None]
  - TREMOR [None]
